FAERS Safety Report 8353447-5 (Version None)
Quarter: 2012Q2

REPORT INFORMATION
  Report Type: 
  Country: None (occurrence: None)
  Receive Date: 20120511
  Receipt Date: 20110314
  Transmission Date: 20120825
  Serious: No
  Sender: FDA-Public Use
  Company Number: US-GLAXOSMITHKLINE-A0918962A

PATIENT
  Sex: Female

DRUGS (1)
  1. TYKERB [Suspect]
     Indication: PRODUCT USED FOR UNKNOWN INDICATION
     Dosage: 1000MG PER DAY
     Dates: start: 20110310

REACTIONS (5)
  - FEELING JITTERY [None]
  - FATIGUE [None]
  - NERVOUSNESS [None]
  - ABDOMINAL PAIN UPPER [None]
  - HYPERCHLORHYDRIA [None]
